FAERS Safety Report 5528600-6 (Version None)
Quarter: 2007Q4

REPORT INFORMATION
  Report Type: 
  Country: None (occurrence: None)
  Receive Date: 20071121
  Receipt Date: 20071113
  Transmission Date: 20080405
  Serious: Yes (Other)
  Sender: FDA-Public Use
  Company Number: 2007335173

PATIENT
  Sex: Female
  Weight: 106 kg

DRUGS (2)
  1. LISTERINE (MENTHOL, METHYL SALICYLATE, EUCALYPTOL, THYMOL) [Suspect]
     Dosage: ORAL
     Route: 048
     Dates: start: 20020101
  2. WARFARIN SODIUM [Concomitant]

REACTIONS (2)
  - ORAL DISCOMFORT [None]
  - THROMBOSIS [None]
